FAERS Safety Report 10151781 (Version 6)
Quarter: 2015Q4

REPORT INFORMATION
  Report Type: Report from Study
  Country: JP (occurrence: JP)
  Receive Date: 20140505
  Receipt Date: 20151027
  Transmission Date: 20160304
  Serious: Yes (Hospitalization)
  Sender: FDA-Public Use
  Company Number: JP-PFIZER INC-2014119479

PATIENT
  Age: 75 Year
  Sex: Female
  Weight: 43.7 kg

DRUGS (15)
  1. XALKORI [Suspect]
     Active Substance: CRIZOTINIB
     Indication: NON-SMALL CELL LUNG CANCER
     Dosage: 250 MG, 2X/DAY
     Route: 048
     Dates: start: 20130809, end: 20130815
  2. VESICARE [Concomitant]
     Active Substance: SOLIFENACIN SUCCINATE
     Dosage: 5 MG, 1X/DAY
     Route: 048
     Dates: start: 20120121
  3. ATORVASTATIN [Concomitant]
     Active Substance: ATORVASTATIN
     Dosage: 5 MG, 1X/DAY
     Route: 048
     Dates: start: 20121220
  4. NEXIUM [Concomitant]
     Active Substance: ESOMEPRAZOLE MAGNESIUM
     Dosage: 20 MG, 1X/DAY
     Route: 048
     Dates: start: 20130319
  5. DAI-KENCHU-TO [Concomitant]
     Active Substance: MALTOSE
     Dosage: 2.5 G, 3X/DAY
     Route: 048
     Dates: start: 20130325
  6. XALKORI [Suspect]
     Active Substance: CRIZOTINIB
     Dosage: 200 MG, 2X/DAY
     Route: 048
     Dates: start: 20130920, end: 20130926
  7. SENNOSIDE [Concomitant]
     Active Substance: SENNOSIDES
     Dosage: 12 MG, AS NEEDED
     Route: 048
     Dates: start: 20110307
  8. SANMEL [Concomitant]
     Dosage: 10 ML, AS NEEDED
     Route: 048
     Dates: start: 20101215
  9. XALKORI [Suspect]
     Active Substance: CRIZOTINIB
     Dosage: 200 MG, UNK
     Route: 048
     Dates: start: 20131004, end: 20131010
  10. MEDEPOLIN [Concomitant]
     Active Substance: ALPRAZOLAM
     Dosage: 0.4 MG, AS NEEDED
     Route: 048
     Dates: start: 20110624
  11. OXATOMIDE [Concomitant]
     Active Substance: OXATOMIDE
     Dosage: 30 MG, AS NEEDED
     Route: 048
     Dates: start: 20130307
  12. BENIDIPINE HYDROCHLORIDE [Concomitant]
     Active Substance: BENIDIPINE HYDROCHLORIDE
     Dosage: 4 MG, UNK
     Route: 048
     Dates: start: 20101225
  13. BROTIZOLAM [Concomitant]
     Active Substance: BROTIZOLAM
     Dosage: 0.5 MG, AS NEEDED
     Route: 048
     Dates: start: 20120114
  14. XALKORI [Suspect]
     Active Substance: CRIZOTINIB
     Dosage: 250 MG, 2X/DAY
     Route: 048
     Dates: start: 20130827, end: 20130905
  15. GASMOTIN [Concomitant]
     Active Substance: MOSAPRIDE CITRATE
     Dosage: 5 MG, 3X/DAY
     Route: 048
     Dates: start: 20111212

REACTIONS (5)
  - Pyrexia [Recovering/Resolving]
  - Nausea [Recovering/Resolving]
  - Renal function test abnormal [Recovered/Resolved]
  - C-reactive protein increased [Recovering/Resolving]
  - Herpes zoster [Recovered/Resolved with Sequelae]

NARRATIVE: CASE EVENT DATE: 20130813
